FAERS Safety Report 9393452 (Version 3)
Quarter: 2014Q1

REPORT INFORMATION
  Report Type: Spontaneous
  Country: JP (occurrence: JP)
  Receive Date: 20130710
  Receipt Date: 20140123
  Transmission Date: 20141002
  Serious: Yes (Other)
  Sender: FDA-Public Use
  Company Number: JP-AMGEN-JPNSP2013047129

PATIENT
  Age: 72 Year
  Sex: Female
  Weight: 41 kg

DRUGS (4)
  1. RANMARK [Suspect]
     Indication: METASTASES TO BONE
     Dosage: 120 MG, UNK
     Route: 058
     Dates: start: 20130107, end: 20130311
  2. ZOMETA [Suspect]
     Indication: PRODUCT USED FOR UNKNOWN INDICATION
     Route: 041
     Dates: start: 20090904, end: 20120903
  3. HERCEPTIN [Concomitant]
     Indication: BREAST CANCER
     Route: 042
     Dates: start: 20130107, end: 20130311
  4. XELODA [Concomitant]
     Indication: BREAST CANCER
     Route: 048
     Dates: start: 20130107, end: 20130311

REACTIONS (1)
  - Osteonecrosis of jaw [Recovered/Resolved]
